FAERS Safety Report 18191530 (Version 1)
Quarter: 2020Q3

REPORT INFORMATION
  Report Type: Report from Study
  Country: None (occurrence: US)
  Receive Date: 20200824
  Receipt Date: 20200824
  Transmission Date: 20201103
  Serious: Yes (Other)
  Sender: FDA-Public Use
  Company Number: US-ABBVIE-20K-163-3313992-00

PATIENT
  Age: 74 Year
  Sex: Female

DRUGS (1)
  1. HUMIRA [Suspect]
     Active Substance: ADALIMUMAB
     Indication: CROHN^S DISEASE
     Route: 058
     Dates: start: 20190627

REACTIONS (5)
  - Adverse food reaction [Unknown]
  - Frequent bowel movements [Unknown]
  - Eczema [Recovering/Resolving]
  - Trigger finger [Unknown]
  - Carpal tunnel syndrome [Recovering/Resolving]

NARRATIVE: CASE EVENT DATE: 202007
